FAERS Safety Report 15985159 (Version 1)
Quarter: 2019Q1

REPORT INFORMATION
  Report Type: Spontaneous
  Country: IT (occurrence: IT)
  Receive Date: 20190220
  Receipt Date: 20190220
  Transmission Date: 20190418
  Serious: Yes (Death)
  Sender: FDA-Public Use
  Company Number: IT-ROCHE-2269529

PATIENT
  Age: 67 Year
  Sex: Male

DRUGS (1)
  1. TECENTRIQ [Suspect]
     Active Substance: ATEZOLIZUMAB
     Indication: LUNG NEOPLASM MALIGNANT
     Route: 042
     Dates: start: 20181129, end: 20181227

REACTIONS (3)
  - General physical health deterioration [Fatal]
  - Blood creatinine increased [Fatal]
  - Anuria [Fatal]

NARRATIVE: CASE EVENT DATE: 20190116
